FAERS Safety Report 11194123 (Version 2)
Quarter: 2015Q3

REPORT INFORMATION
  Report Type: Spontaneous
  Country: US (occurrence: US)
  Receive Date: 20150616
  Receipt Date: 20150724
  Transmission Date: 20151125
  Serious: Yes (Other)
  Sender: FDA-Public Use
  Company Number: US-PFIZER INC-2015197364

PATIENT
  Age: 66 Year
  Sex: Male
  Weight: 119.73 kg

DRUGS (1)
  1. LYRICA [Suspect]
     Active Substance: PREGABALIN
     Indication: DIABETIC NEUROPATHY
     Dosage: 300 MG, 2X/DAY (ONE MORNING AND ONE EVENING)
     Dates: start: 2000, end: 20150605

REACTIONS (7)
  - Hypoaesthesia [Unknown]
  - Limb injury [Unknown]
  - Wheelchair user [Unknown]
  - Arthropathy [Unknown]
  - Peripheral coldness [Unknown]
  - Meniscus injury [Unknown]
  - Pain in extremity [Unknown]

NARRATIVE: CASE EVENT DATE: 20150605
